FAERS Safety Report 5229200-8 (Version None)
Quarter: 2007Q1

REPORT INFORMATION
  Report Type: 
  Country: None (occurrence: None)
  Receive Date: 20061201
  Receipt Date: 20060906
  Transmission Date: 20070707
  Serious: No
  Sender: FDA-Public Use
  Company Number: US200609001469

PATIENT
  Sex: Male

DRUGS (2)
  1. CYMBALTA [Suspect]
     Indication: NECK PAIN
     Dosage: 60MG, DAILY (1/D)
     Dates: start: 20060801
  2. PROZAC [Suspect]
     Indication: NECK PAIN
     Dosage: DAILY (1/D)
     Dates: start: 20050101

REACTIONS (5)
  - DRUG WITHDRAWAL SYNDROME [None]
  - INSOMNIA [None]
  - PSYCHOMOTOR HYPERACTIVITY [None]
  - RASH [None]
  - SEXUAL DYSFUNCTION [None]
